FAERS Safety Report 9353634 (Version 3)
Quarter: 2013Q3

REPORT INFORMATION
  Report Type: Spontaneous
  Country: JP (occurrence: JP)
  Receive Date: 20130618
  Receipt Date: 20130704
  Transmission Date: 20140515
  Serious: Yes (Other)
  Sender: FDA-Public Use
  Company Number: JP-PFIZER INC-2013182490

PATIENT
  Age: 61 Year
  Sex: Female

DRUGS (2)
  1. LYRICA [Suspect]
     Dosage: 25 MG AND 75 MG
     Route: 048
     Dates: start: 201111, end: 201111
  2. CELECOX [Suspect]
     Dosage: UNK

REACTIONS (1)
  - Erythema multiforme [Unknown]
